FAERS Safety Report 12121474 (Version 1)
Quarter: 2016Q1

REPORT INFORMATION
  Report Type: Spontaneous
  Country: US (occurrence: US)
  Receive Date: 20160226
  Receipt Date: 20160226
  Transmission Date: 20160526
  Serious: No
  Sender: FDA-Public Use
  Company Number: US-ALLERGAN-1306532US

PATIENT
  Sex: Female

DRUGS (3)
  1. REFRESH OPTIVE SENSITIVE [Suspect]
     Active Substance: CARBOXYMETHYLCELLULOSE SODIUM\GLYCERIN
     Indication: DRY EYE
     Dosage: UNK UNK, PRN
  2. STEROID [Concomitant]
     Active Substance: UNSPECIFIED INGREDIENT
     Indication: CORNEAL TRANSPLANT
     Dosage: UNK
  3. GLAUCOMA EYEDROPS [Concomitant]
     Indication: GLAUCOMA

REACTIONS (1)
  - Instillation site pain [Recovered/Resolved]

NARRATIVE: CASE EVENT DATE: 20130502
